FAERS Safety Report 21516449 (Version 1)
Quarter: 2022Q4

REPORT INFORMATION
  Report Type: Spontaneous
  Country: SE (occurrence: SE)
  Receive Date: 20221027
  Receipt Date: 20221027
  Transmission Date: 20230113
  Serious: Yes (Hospitalization)
  Sender: FDA-Public Use
  Company Number: None

PATIENT
  Age: 63 Year
  Sex: Female

DRUGS (8)
  1. ATORVASTATIN [Suspect]
     Active Substance: ATORVASTATIN
     Indication: Hyperlipidaemia
     Dosage: UNCLEAR STRENGTH ,FREQUENCY TIME  : 1 DAY
     Route: 065
     Dates: start: 20070101, end: 20220803
  2. INSULIN HUMAN [Concomitant]
     Active Substance: INSULIN HUMAN
     Indication: Product used for unknown indication
     Dosage: 100 IU/ML ACCORDING TO PRESCRIPTION , 100 IU/ML SOLUTION FOR INJECTION, SUSPENSION IN PRE-FILLED
     Dates: start: 2014
  3. MAGNESIUM HYDROXIDE [Concomitant]
     Active Substance: MAGNESIUM HYDROXIDE
     Indication: Product used for unknown indication
     Dosage: FORM STRENGTH : 250 MG , UNIT DOSE : 250 MG , FREQUENCY TIME : 1 DAY
     Dates: start: 20191008
  4. LEVOTHYROXINE SODIUM [Concomitant]
     Active Substance: LEVOTHYROXINE SODIUM
     Indication: Product used for unknown indication
     Dosage: FORM STRENGTH : 75 MICROGRAM , UNIT DOSE : 75 MICROGRAM , FREQUENCY TIME : 1 DAY
     Dates: start: 2015
  5. HUMALOG KWIKPEN [Concomitant]
     Active Substance: INSULIN LISPRO
     Indication: Product used for unknown indication
     Dosage: 100 U/ML ACCORDING TO PRESCRIPTION 100 U/ML SOLUTION FOR INJECTION, SOLUTION IN PRE-FILLED INJECTION
     Dates: start: 2014
  6. ASPIRIN [Concomitant]
     Active Substance: ASPIRIN
     Indication: Product used for unknown indication
     Dosage: FORM STRENGTH : 75 MG , UNIT DOSE : 75 MG , FREQUENCY TIME :1 DAY
     Dates: start: 2014
  7. LIOTHYRONINE SODIUM [Concomitant]
     Active Substance: LIOTHYRONINE SODIUM
     Indication: Product used for unknown indication
     Dosage: FORM STRENGTH :  20 MICROGRAM  , UNIT DOSE : 10 MICROGRAM   , FREQUENCY TIME : 1 DAY
     Dates: start: 20150624
  8. HUMALOG [Concomitant]
     Active Substance: INSULIN LISPRO
     Indication: Product used for unknown indication
     Dosage: 100 U/ML ACCORDING TO PRESCRIPTION.
     Dates: start: 20141112

REACTIONS (1)
  - Autoimmune myositis [Recovering/Resolving]

NARRATIVE: CASE EVENT DATE: 20220801
